FAERS Safety Report 20501849 (Version 2)
Quarter: 2022Q1

REPORT INFORMATION
  Report Type: Report from Study
  Country: ES (occurrence: None)
  Receive Date: 20220222
  Receipt Date: 20220225
  Transmission Date: 20220424
  Serious: Yes (Hospitalization)
  Sender: FDA-Public Use
  Company Number: ES-ROCHE-3024965

PATIENT
  Age: 57 Year
  Sex: Female
  Weight: 49.5 kg

DRUGS (14)
  1. CARBOPLATIN [Suspect]
     Active Substance: CARBOPLATIN
     Indication: Non-small cell lung cancer
     Dosage: LAST DOSE DATE  25/01/2022
     Route: 042
     Dates: start: 20220125
  2. VINORELBINE [Suspect]
     Active Substance: VINORELBINE TARTRATE
     Indication: Non-small cell lung cancer
     Dosage: LAST DOSE DATE  25/01/2022
     Route: 048
     Dates: start: 20220125
  3. FORMOTEROL [Concomitant]
     Active Substance: FORMOTEROL
     Dosage: DOSE : 9 MCG
     Dates: start: 20211008
  4. BUDESONIDE [Concomitant]
     Active Substance: BUDESONIDE
     Dosage: DOSE : 320 MCG
     Dates: start: 20211008
  5. CODEINE [Concomitant]
     Active Substance: CODEINE
     Route: 048
     Dates: start: 20211122
  6. MOMETASONE FUROATE [Concomitant]
     Active Substance: MOMETASONE FUROATE
     Route: 061
     Dates: start: 20211207
  7. DEXCHLORPHENIRAMINE [Concomitant]
     Active Substance: DEXCHLORPHENIRAMINE
     Route: 048
     Dates: start: 20211207
  8. OMEPRAZOLE [Concomitant]
     Active Substance: OMEPRAZOLE
     Route: 048
     Dates: start: 20211214
  9. LOPERAMIDE [Concomitant]
     Active Substance: LOPERAMIDE
     Route: 048
     Dates: start: 20220126
  10. SULPIRIDE [Concomitant]
     Active Substance: SULPIRIDE
     Route: 048
     Dates: start: 20220201
  11. CLAVULANIC ACID [Concomitant]
     Active Substance: CLAVULANIC ACID
  12. AMOXICILLIN [Concomitant]
     Active Substance: AMOXICILLIN
  13. TAZOBACTAM [Concomitant]
     Active Substance: TAZOBACTAM
  14. PIPERACILLIN [Concomitant]
     Active Substance: PIPERACILLIN

REACTIONS (1)
  - Pancytopenia [Recovered/Resolved]

NARRATIVE: CASE EVENT DATE: 20220208
